FAERS Safety Report 13062638 (Version 1)
Quarter: 2016Q4

REPORT INFORMATION
  Report Type: Spontaneous
  Country: US (occurrence: US)
  Receive Date: 20161226
  Receipt Date: 20161226
  Transmission Date: 20170207
  Serious: Yes (Hospitalization)
  Sender: FDA-Public Use
  Company Number: US-BEH-2016076463

PATIENT
  Age: 69 Year
  Sex: Male

DRUGS (1)
  1. STIMATE [Suspect]
     Active Substance: DESMOPRESSIN ACETATE
     Indication: ILL-DEFINED DISORDER
     Dosage: 300 ?G, PRN
     Route: 045
     Dates: start: 20150827

REACTIONS (1)
  - Cardiac failure [Unknown]
